FAERS Safety Report 16426831 (Version 1)
Quarter: 2019Q2

REPORT INFORMATION
  Report Type: Spontaneous
  Country: US (occurrence: US)
  Receive Date: 20190613
  Receipt Date: 20190613
  Transmission Date: 20190711
  Serious: No
  Sender: FDA-Public Use
  Company Number: US-TEVA-2019-US-1061351

PATIENT
  Age: 68 Year
  Sex: Female

DRUGS (4)
  1. PREGABALIN. [Suspect]
     Active Substance: PREGABALIN
     Indication: PERIPHERAL SENSORY NEUROPATHY
     Route: 065
  2. GABAPENTIN. [Suspect]
     Active Substance: GABAPENTIN
     Indication: PERIPHERAL SENSORY NEUROPATHY
     Route: 065
  3. LIDOCAINE PATCH [Suspect]
     Active Substance: LIDOCAINE
     Indication: PERIPHERAL SENSORY NEUROPATHY
     Route: 065
  4. CAPSAICIN PATCH [Suspect]
     Active Substance: CAPSAICIN
     Indication: PERIPHERAL SENSORY NEUROPATHY
     Route: 062

REACTIONS (1)
  - Treatment failure [Unknown]
